APPROVED DRUG PRODUCT: NIACIN
Active Ingredient: NIACIN
Strength: 750MG
Dosage Form/Route: TABLET, EXTENDED RELEASE;ORAL
Application: A090892 | Product #001 | TE Code: AB
Applicant: CHARTWELL RX SCIENCES LLC
Approved: Mar 20, 2014 | RLD: No | RS: No | Type: RX